FAERS Safety Report 23437084 (Version 4)
Quarter: 2024Q2

REPORT INFORMATION
  Report Type: Spontaneous
  Country: US (occurrence: US)
  Receive Date: 20240124
  Receipt Date: 20240410
  Transmission Date: 20240715
  Serious: No
  Sender: FDA-Public Use
  Company Number: US-SANDOZ-SDZ2024US006654

PATIENT
  Sex: Male

DRUGS (3)
  1. AMIODARONE [Suspect]
     Active Substance: AMIODARONE
     Indication: Product used for unknown indication
     Dosage: UNK
     Route: 065
  2. ENTRESTO [Suspect]
     Active Substance: SACUBITRIL\VALSARTAN
     Indication: Product used for unknown indication
     Dosage: 99.02 MG, QD (49.51 MG, BID)
     Route: 048
  3. ENTRESTO [Suspect]
     Active Substance: SACUBITRIL\VALSARTAN
     Dosage: 2 DOSAGE FORM, QD (1 DF, BID)
     Route: 065

REACTIONS (9)
  - Nasopharyngitis [Unknown]
  - Productive cough [Recovering/Resolving]
  - Rash [Recovered/Resolved]
  - Extra dose administered [Unknown]
  - Ventricular extrasystoles [Unknown]
  - Malaise [Unknown]
  - Blood pressure decreased [Unknown]
  - Heart rate abnormal [Unknown]
  - Wrong technique in product usage process [Unknown]
